FAERS Safety Report 15139121 (Version 4)
Quarter: 2019Q1

REPORT INFORMATION
  Report Type: Spontaneous
  Country: CA (occurrence: CA)
  Receive Date: 20180713
  Receipt Date: 20190202
  Transmission Date: 20190417
  Serious: Yes (Other)
  Sender: FDA-Public Use
  Company Number: CA-ROCHE-2154503

PATIENT
  Age: 21 Year
  Sex: Male

DRUGS (3)
  1. BILASTINE [Concomitant]
     Active Substance: BILASTINE
     Indication: PRODUCT USED FOR UNKNOWN INDICATION
     Dosage: 1 DF (20 MG), QD
     Route: 048
     Dates: start: 201706
  2. XOLAIR [Suspect]
     Active Substance: OMALIZUMAB
     Indication: CHRONIC SPONTANEOUS URTICARIA
     Route: 058
     Dates: start: 20180508
  3. XOLAIR [Suspect]
     Active Substance: OMALIZUMAB
     Route: 058
     Dates: start: 20180606

REACTIONS (6)
  - Erythema [Unknown]
  - Pruritus [Not Recovered/Not Resolved]
  - Urticaria [Unknown]
  - Terminal insomnia [Unknown]
  - Therapy partial responder [Unknown]
  - Weight increased [Unknown]

NARRATIVE: CASE EVENT DATE: 20180628
